FAERS Safety Report 23257572 (Version 2)
Quarter: 2024Q2

REPORT INFORMATION
  Report Type: Spontaneous
  Country: KR (occurrence: KR)
  Receive Date: 20231204
  Receipt Date: 20240627
  Transmission Date: 20240716
  Serious: Yes (Other)
  Sender: FDA-Public Use
  Company Number: KR-BAYER-2023A171143

PATIENT
  Age: 67 Year
  Sex: Female

DRUGS (1)
  1. EYLEA [Suspect]
     Active Substance: AFLIBERCEPT
     Indication: Neovascular age-related macular degeneration
     Dosage: UNK, 40 MG/ML

REACTIONS (3)
  - Subretinal fluid [Unknown]
  - Subretinal hyperreflective exudation [Unknown]
  - Therapeutic product effect incomplete [Recovering/Resolving]
